FAERS Safety Report 26075560 (Version 1)
Quarter: 2025Q4

REPORT INFORMATION
  Report Type: Spontaneous
  Country: US (occurrence: None)
  Receive Date: 20251120
  Receipt Date: 20251120
  Transmission Date: 20260118
  Serious: Yes (Hospitalization)
  Sender: FDA-CTU
  Company Number: None

PATIENT
  Age: 51 Year
  Sex: Female

DRUGS (1)
  1. CAPECITABINE [Suspect]
     Active Substance: CAPECITABINE
     Indication: Gallbladder cancer
     Dosage: FREQUENCY : TWICE A DAY;?
     Route: 048
     Dates: start: 20250816

REACTIONS (8)
  - Paronychia [None]
  - Peripheral swelling [None]
  - Skin fissures [None]
  - Skin discolouration [None]
  - Dehydration [None]
  - Anaemia [None]
  - Dry skin [None]
  - Colitis [None]

NARRATIVE: CASE EVENT DATE: 20251103
